FAERS Safety Report 6015958-7 (Version None)
Quarter: 2008Q4

REPORT INFORMATION
  Report Type: 
  Country: None (occurrence: None)
  Receive Date: 20081216
  Receipt Date: 20080422
  Transmission Date: 20090506
  Serious: Yes (Other)
  Sender: FDA-Public Use
  Company Number: US-WYE-H03718108

PATIENT
  Age: 55 Year
  Sex: Female
  Weight: 85.81 kg

DRUGS (8)
  1. EFFEXOR XR [Suspect]
     Indication: ANXIETY
     Dosage: 75 MG 1X PER 1 DAY, ORAL ; 37.5 MG 1X PER 1 DAY, ORAL ; 75 MG 1X PER 1 DAY, ORAL
     Route: 048
     Dates: start: 20060101, end: 20080101
  2. EFFEXOR XR [Suspect]
     Indication: ANXIETY
     Dosage: 75 MG 1X PER 1 DAY, ORAL ; 37.5 MG 1X PER 1 DAY, ORAL ; 75 MG 1X PER 1 DAY, ORAL
     Route: 048
     Dates: start: 20080101, end: 20080419
  3. EFFEXOR XR [Suspect]
     Indication: ANXIETY
     Dosage: 75 MG 1X PER 1 DAY, ORAL ; 37.5 MG 1X PER 1 DAY, ORAL ; 75 MG 1X PER 1 DAY, ORAL
     Route: 048
     Dates: start: 20080420
  4. NORVASC [Concomitant]
  5. DIOVAN [Concomitant]
  6. ACETYLSALICYLIC ACID SRT [Concomitant]
  7. BONIVA [Concomitant]
  8. VAGIFEM [Concomitant]

REACTIONS (3)
  - INSOMNIA [None]
  - UNEVALUABLE EVENT [None]
  - URTICARIA [None]
